FAERS Safety Report 22774819 (Version 2)
Quarter: 2024Q1

REPORT INFORMATION
  Report Type: Spontaneous
  Country: CA (occurrence: CA)
  Receive Date: 20230802
  Receipt Date: 20240207
  Transmission Date: 20240410
  Serious: Yes (Other)
  Sender: FDA-Public Use
  Company Number: CA-CELLTRION INC.-2023CA015090

PATIENT

DRUGS (10)
  1. RITUXIMAB [Suspect]
     Active Substance: RITUXIMAB
     Indication: Follicular lymphoma
     Dosage: UNK
     Route: 065
  2. RITUXIMAB [Suspect]
     Active Substance: RITUXIMAB
     Dosage: UNK
     Route: 065
  3. BENDAMUSTINE HYDROCHLORIDE [Suspect]
     Active Substance: BENDAMUSTINE HYDROCHLORIDE
     Indication: Follicular lymphoma
     Dosage: UNK
     Route: 065
  4. CISPLATIN [Suspect]
     Active Substance: CISPLATIN
     Indication: Follicular lymphoma
     Dosage: UNK
     Route: 065
  5. CYCLOPHOSPHAMIDE [Suspect]
     Active Substance: CYCLOPHOSPHAMIDE
     Indication: Follicular lymphoma
     Dosage: UNK
     Route: 065
  6. DEXAMETHASONE [Suspect]
     Active Substance: DEXAMETHASONE
     Indication: Follicular lymphoma
     Dosage: UNK
     Route: 065
  7. DOXORUBICIN HYDROCHLORIDE [Suspect]
     Active Substance: DOXORUBICIN HYDROCHLORIDE
     Indication: Follicular lymphoma
     Dosage: UNK
     Route: 065
  8. GEMCITABINE [Suspect]
     Active Substance: GEMCITABINE
     Indication: Follicular lymphoma
     Dosage: UNK
     Route: 065
  9. PREDNISONE [Suspect]
     Active Substance: PREDNISONE
     Indication: Follicular lymphoma
     Dosage: UNK
     Route: 065
  10. VINCRISTINE SULFATE [Suspect]
     Active Substance: VINCRISTINE SULFATE
     Indication: Follicular lymphoma
     Dosage: UNK
     Route: 065

REACTIONS (2)
  - Disease progression [Unknown]
  - Blood lactate dehydrogenase increased [Unknown]
